FAERS Safety Report 12920725 (Version 1)
Quarter: 2016Q4

REPORT INFORMATION
  Report Type: Spontaneous
  Country: DK (occurrence: DK)
  Receive Date: 20161107
  Receipt Date: 20161107
  Transmission Date: 20170207
  Serious: Yes (Death)
  Sender: FDA-Public Use
  Company Number: DK-FRESENIUS KABI-FK201608466

PATIENT
  Age: 28 Year
  Sex: Female
  Weight: 50 kg

DRUGS (6)
  1. PROPOFOL (MANUFACTURER UNKNOWN) [Suspect]
     Active Substance: PROPOFOL
     Route: 041
  2. PHENYTOIN. [Concomitant]
     Active Substance: PHENYTOIN
  3. LEVETIRACETAM. [Concomitant]
     Active Substance: LEVETIRACETAM
  4. VALPROATE [Concomitant]
     Active Substance: VALPROIC ACID
  5. PROPOFOL (MANUFACTURER UNKNOWN) [Suspect]
     Active Substance: PROPOFOL
     Indication: ANAESTHESIA PROCEDURE
     Route: 041
  6. REMIFENTANIL [Concomitant]
     Active Substance: REMIFENTANIL

REACTIONS (1)
  - Propofol infusion syndrome [Fatal]
